FAERS Safety Report 8114614-9 (Version None)
Quarter: 2012Q1

REPORT INFORMATION
  Report Type: 
  Country: None (occurrence: None)
  Receive Date: 20120206
  Receipt Date: 20120202
  Transmission Date: 20120608
  Serious: Yes (Other)
  Sender: FDA-Public Use
  Company Number: US-PFIZER INC-2012029212

PATIENT
  Sex: Female
  Weight: 94.785 kg

DRUGS (11)
  1. LEVOTHYROXINE SODIUM [Suspect]
     Indication: RETROPERITONEAL FIBROSIS
  2. ACETAMINOPHEN AND HYDROCODONE BITARTRATE [Suspect]
     Indication: PAIN
     Dosage: 500/10 MG, 3X/DAY
     Route: 048
     Dates: start: 20060101
  3. GABAPENTIN [Suspect]
     Indication: RETROPERITONEAL FIBROSIS
  4. FLEXERIL [Suspect]
     Indication: MUSCLE SPASMS
     Dosage: 10 MG, 3X/DAY
     Route: 048
     Dates: start: 20080101
  5. FLEXERIL [Suspect]
     Indication: RETROPERITONEAL FIBROSIS
  6. ACETAMINOPHEN AND HYDROCODONE BITARTRATE [Suspect]
     Indication: RETROPERITONEAL FIBROSIS
  7. CYMBALTA [Suspect]
     Indication: FIBROMYALGIA
     Dosage: 60 MG, DAILY
     Route: 048
     Dates: start: 20080101
  8. CHANTIX [Suspect]
     Indication: SMOKING CESSATION THERAPY
     Dosage: 0.5 MG, DAILY
     Route: 048
     Dates: start: 20120130, end: 20120101
  9. GABAPENTIN [Suspect]
     Indication: PERIPHERAL NERVE INJURY
     Dosage: 800 MG, 3X/DAY
     Dates: start: 20060101
  10. CYMBALTA [Suspect]
     Indication: RETROPERITONEAL FIBROSIS
  11. LEVOTHYROXINE SODIUM [Suspect]
     Indication: THYROID DISORDER
     Dosage: 0.137 UG, DAILY
     Route: 048
     Dates: start: 20060101

REACTIONS (3)
  - NAUSEA [None]
  - PAIN [None]
  - MEMORY IMPAIRMENT [None]
